FAERS Safety Report 9289505 (Version 4)
Quarter: 2013Q3

REPORT INFORMATION
  Report Type: Spontaneous
  Country: US (occurrence: US)
  Receive Date: 20130515
  Receipt Date: 20130730
  Transmission Date: 20140515
  Serious: Yes (Other)
  Sender: FDA-Public Use
  Company Number: US-009507513-1305USA005200

PATIENT
  Age: 21 Year
  Sex: Female
  Weight: 84.35 kg

DRUGS (1)
  1. NEXPLANON [Suspect]
     Indication: CONTRACEPTION
     Dosage: 68 MG ETONOGESTREL
     Route: 059
     Dates: start: 20130204, end: 20130306

REACTIONS (6)
  - Implant site pustules [Recovered/Resolved]
  - Implant site swelling [Recovered/Resolved]
  - Implant site warmth [Recovered/Resolved]
  - Implant site pain [Recovered/Resolved]
  - Implant site infection [Recovered/Resolved]
  - Implant site erythema [Recovered/Resolved]
